FAERS Safety Report 4796352-3 (Version None)
Quarter: 2005Q4

REPORT INFORMATION
  Report Type: 
  Country: None (occurrence: None)
  Receive Date: 20051007
  Receipt Date: 20050930
  Transmission Date: 20060501
  Serious: Yes (Hospitalization, Other)
  Sender: FDA-Public Use
  Company Number: ITWYE024003OCT05

PATIENT
  Age: 42 Year
  Sex: Male

DRUGS (3)
  1. RAPAMUNE [Suspect]
     Indication: PROPHYLAXIS AGAINST TRANSPLANT REJECTION
     Dosage: 7 MG 1X PER 1 DAY; ORAL
     Route: 048
     Dates: start: 20050727, end: 20051001
  2. RAPAMUNE [Suspect]
     Dosage: 5MG FOR THREE DAYS; ORAL
     Route: 048
     Dates: start: 20051003, end: 20051001
  3. RAPAMUNE [Suspect]
     Dosage: 3MG; ORAL
     Route: 048
     Dates: start: 20051001

REACTIONS (6)
  - BLOOD CHLORIDE INCREASED [None]
  - BLOOD PHOSPHORUS DECREASED [None]
  - BLOOD TRIGLYCERIDES INCREASED [None]
  - CREATINE PHOSPHOKINASE DECREASED [None]
  - KIDNEY TRANSPLANT REJECTION [None]
  - PROTEIN TOTAL DECREASED [None]
